FAERS Safety Report 9054708 (Version 1)
Quarter: 2013Q1

REPORT INFORMATION
  Report Type: Spontaneous
  Country: IT (occurrence: IT)
  Receive Date: 20130208
  Receipt Date: 20130208
  Transmission Date: 20140127
  Serious: Yes (Hospitalization)
  Sender: FDA-Public Use
  Company Number: IT-PFIZER INC-2013046623

PATIENT
  Age: 78 Year
  Sex: Male

DRUGS (6)
  1. RAMIPRIL [Suspect]
     Indication: HYPERTENSION
     Dosage: 5 MG, 1X/DAY
     Route: 048
     Dates: start: 20090101, end: 20130113
  2. TORVAST [Concomitant]
     Indication: DYSLIPIDAEMIA
  3. CARDIRENE [Concomitant]
  4. ALLOPURINOL [Concomitant]
  5. SERETIDE DISKUS [Concomitant]
  6. FUROSEMIDE [Concomitant]

REACTIONS (3)
  - Hypersensitivity [Recovered/Resolved]
  - Tongue oedema [Recovered/Resolved]
  - Anaemia [Recovered/Resolved]
